FAERS Safety Report 10500932 (Version 3)
Quarter: 2015Q1

REPORT INFORMATION
  Report Type: Spontaneous
  Country: CA (occurrence: CA)
  Receive Date: 20141007
  Receipt Date: 20150102
  Transmission Date: 20150720
  Serious: Yes (Hospitalization, Other)
  Sender: FDA-Public Use
  Company Number: CA-PFIZER INC-2014269049

PATIENT
  Sex: Female

DRUGS (2)
  1. EFFEXOR [Suspect]
     Active Substance: VENLAFAXINE HYDROCHLORIDE
     Dosage: 225 MG, DAILY
     Route: 064
     Dates: start: 2001, end: 2010
  2. EFFEXOR XR [Suspect]
     Active Substance: VENLAFAXINE HYDROCHLORIDE
     Dosage: 225 MG, DAILY
     Route: 064
     Dates: start: 2001, end: 2011

REACTIONS (6)
  - Neonatal hypoxia [Recovered/Resolved]
  - Seizure [Recovered/Resolved]
  - Sleep disorder [Recovered/Resolved]
  - Unresponsive to stimuli [Recovered/Resolved]
  - Maternal exposure during pregnancy [Recovered/Resolved]
  - Feeding disorder neonatal [Recovered/Resolved]

NARRATIVE: CASE EVENT DATE: 2005
